FAERS Safety Report 23111930 (Version 1)
Quarter: 2023Q4

REPORT INFORMATION
  Report Type: Spontaneous
  Country: US (occurrence: US)
  Receive Date: 20231026
  Receipt Date: 20231026
  Transmission Date: 20240110
  Serious: Yes (Disabling, Other)
  Sender: FDA-Public Use
  Company Number: US-TEVA-2023-US-2937466

PATIENT
  Age: 79 Year
  Sex: Female
  Weight: 77.11 kg

DRUGS (1)
  1. COPAXONE [Suspect]
     Active Substance: GLATIRAMER ACETATE
     Indication: Multiple sclerosis
     Dosage: ABOUT 20 YEARS AGO
     Route: 065

REACTIONS (7)
  - Spinal operation [Unknown]
  - Hip arthroplasty [Unknown]
  - Disability [Unknown]
  - Surgical failure [Recovered/Resolved]
  - Weight increased [Unknown]
  - Procedural pain [Unknown]
  - Bradykinesia [Unknown]

NARRATIVE: CASE EVENT DATE: 20220101
